FAERS Safety Report 5955731-9 (Version None)
Quarter: 2008Q4

REPORT INFORMATION
  Report Type: 
  Country: None (occurrence: None)
  Receive Date: 20081117
  Receipt Date: 20081113
  Transmission Date: 20090506
  Serious: Yes (Other)
  Sender: FDA-Public Use
  Company Number: JP-ROXANE LABORATORIES, INC.-2008-RO-00223RO

PATIENT
  Age: 56 Year
  Sex: Female

DRUGS (3)
  1. CYCLOPHOSPHAMIDE [Suspect]
     Indication: GLOMERULONEPHRITIS PROLIFERATIVE
     Route: 042
  2. PREDNISOLONE [Suspect]
     Indication: GLOMERULONEPHRITIS PROLIFERATIVE
     Route: 048
  3. GANCICLOVIR [Concomitant]
     Indication: CYTOMEGALOVIRUS GASTROINTESTINAL INFECTION

REACTIONS (1)
  - CYTOMEGALOVIRUS GASTROINTESTINAL INFECTION [None]
